FAERS Safety Report 5484419-6 (Version None)
Quarter: 2007Q4

REPORT INFORMATION
  Report Type: 
  Country: None (occurrence: None)
  Receive Date: 20071010
  Receipt Date: 20071001
  Transmission Date: 20080405
  Serious: Yes (Hospitalization)
  Sender: FDA-Public Use
  Company Number: 2007-03151

PATIENT
  Age: 61 Year

DRUGS (8)
  1. VELCADE [Suspect]
     Indication: MULTIPLE MYELOMA
  2. DOXORUBICIN HCL [Suspect]
     Indication: MULTIPLE MYELOMA
  3. DEXAMETHASONE TAB [Suspect]
     Indication: MULTIPLE MYELOMA
  4. MELPHALAN(MELPHALAN) [Suspect]
     Indication: MULTIPLE MYELOMA
  5. PANTOZOL (PANTOPRAZOLE SODIUM) [Concomitant]
  6. VFEND [Concomitant]
  7. KALINOR RETARD (POTASSIUM CHLORIDE) [Concomitant]
  8. TRAMADOL HYDROHLORIDE [Concomitant]

REACTIONS (3)
  - CHEST PAIN [None]
  - GENERAL PHYSICAL HEALTH DETERIORATION [None]
  - LUNG INFILTRATION [None]
